FAERS Safety Report 6490229-3 (Version None)
Quarter: 2009Q4

REPORT INFORMATION
  Report Type: 
  Country: None (occurrence: None)
  Receive Date: 20091211
  Receipt Date: 20091203
  Transmission Date: 20100525
  Serious: Yes (Other)
  Sender: FDA-Public Use
  Company Number: GR-ROCHE-672959

PATIENT
  Sex: Female

DRUGS (2)
  1. BONIVA [Suspect]
     Indication: OSTEOPOROSIS
     Dosage: DOSE FORM: F.C. TABLET
     Route: 048
     Dates: start: 20091201
  2. PLAVIX [Concomitant]
     Route: 048

REACTIONS (3)
  - BONE PAIN [None]
  - CHEST PAIN [None]
  - MYALGIA [None]
